FAERS Safety Report 9008112 (Version 1)
Quarter: 2012Q4

REPORT INFORMATION
  Report Type: Spontaneous
  Country: DE (occurrence: None)
  Receive Date: 20121227
  Receipt Date: 20121227
  Transmission Date: 20130627
  Serious: Yes (Death, Life-Threatening, Hospitalization, Congenital Anomaly, Other)
  Sender: FDA-Public Use
  Company Number: GER/GER/12/0027100

PATIENT
  Age: 28 Day
  Sex: Male
  Weight: 3.63 kg

DRUGS (3)
  1. FLUOXETINE [Suspect]
     Indication: DRUG USE FOR UNKNOWN INDICATION
     Dosage: 264 D
     Route: 064
     Dates: start: 20111008, end: 20120627
  2. FLUOXETINE [Suspect]
     Indication: DRUG USE FOR UNKNOWN INDICATION
     Route: 062
     Dates: end: 20120627
  3. FEMIBION (FEMIBION) [Concomitant]

REACTIONS (6)
  - Double outlet right ventricle [None]
  - Maternal drugs affecting foetus [None]
  - Transposition of the great vessels [None]
  - Ventricular septal defect [None]
  - Dialysis [None]
  - Fungal sepsis [None]
